FAERS Safety Report 4371785-8 (Version None)
Quarter: 2004Q2

REPORT INFORMATION
  Report Type: 
  Country: None (occurrence: None)
  Receive Date: 20040601
  Receipt Date: 20040518
  Transmission Date: 20050107
  Serious: Yes (Death)
  Sender: FDA-Public Use
  Company Number: 163-20785-04050449

PATIENT
  Age: 8 Year
  Sex: Male

DRUGS (1)
  1. THALOMID [Suspect]
     Indication: BONE NEOPLASM MALIGNANT
     Dosage: 200 MG QD ORAL
     Route: 048
     Dates: start: 20031222

REACTIONS (1)
  - NEUROBLASTOMA [None]
